FAERS Safety Report 10037428 (Version 1)
Quarter: 2014Q1

REPORT INFORMATION
  Report Type: Spontaneous
  Country: US (occurrence: US)
  Receive Date: 20140326
  Receipt Date: 20140326
  Transmission Date: 20141002
  Serious: Yes (Hospitalization)
  Sender: FDA-Public Use
  Company Number: US-SA-2014SA032226

PATIENT
  Age: 43 Year
  Sex: Male

DRUGS (6)
  1. SOLOSTAR [Suspect]
     Indication: DEVICE THERAPY
  2. SOLOSTAR [Suspect]
     Indication: DEVICE THERAPY
  3. SOLOSTAR [Suspect]
     Indication: DEVICE THERAPY
  4. LANTUS SOLOSTAR [Suspect]
     Indication: TYPE 2 DIABETES MELLITUS
     Dosage: TAKEN FROM: COUPLE OF YEARS DOSE:30 UNIT(S)
     Route: 065
  5. LANTUS SOLOSTAR [Suspect]
     Indication: TYPE 2 DIABETES MELLITUS
     Dosage: TAKEN FROM: COUPLE OF YEARS DOSE:30 UNIT(S)
     Route: 065
  6. LANTUS SOLOSTAR [Suspect]
     Indication: TYPE 2 DIABETES MELLITUS
     Dosage: TAKEN FROM: COUPLE OF YEARS DOSE:30 UNIT(S)
     Route: 065

REACTIONS (1)
  - Investigation [Unknown]
